FAERS Safety Report 8023313-3 (Version None)
Quarter: 2012Q1

REPORT INFORMATION
  Report Type: 
  Country: None (occurrence: None)
  Receive Date: 20120104
  Receipt Date: 20111220
  Transmission Date: 20120608
  Serious: Yes (Death, Hospitalization, Disabling, Other)
  Sender: FDA-Public Use
  Company Number: IT-ROCHE-729635

PATIENT
  Sex: Female
  Weight: 46 kg

DRUGS (41)
  1. LANSOPRAZOLE [Concomitant]
  2. SEVELAMER [Concomitant]
  3. SEVELAMER [Concomitant]
  4. RISEDRONIC ACID [Concomitant]
  5. LANTHANUM CARBONATE [Concomitant]
  6. MIRCERA [Suspect]
     Dosage: LAST DOSE PRIOR TO SAE: 14 JANUARY 2011.
     Route: 042
  7. METOPROLOL SUCCINATE [Concomitant]
  8. IMATINIB MESYLATE [Concomitant]
     Dates: start: 20110113
  9. DALTEPARIN SODIUM [Concomitant]
     Dates: start: 20111003
  10. MIRCERA [Suspect]
     Indication: NEPHROGENIC ANAEMIA
     Dosage: LAST DOSE PRIOR TO SAE: 16 NOVEMBER 2011, DOSAGE FORM: PFS
     Route: 042
  11. ASPIRIN [Concomitant]
  12. FUROSEMIDE [Concomitant]
  13. TELMISARTAN [Concomitant]
  14. ALLOPURINOL [Concomitant]
  15. RANITIDINE [Concomitant]
     Dates: start: 20111031
  16. CILOSTAZOL [Concomitant]
     Dates: start: 20111031
  17. L-CARNITINE [Concomitant]
     Dates: start: 20100906
  18. CARVEDILOL [Concomitant]
  19. ASPIRIN [Concomitant]
     Dates: start: 20091226
  20. MIRCERA [Suspect]
     Dosage: LAST DOSE PRIOR TO SAE: 15 AUG 2011
     Route: 042
  21. PREDNISONE TAB [Concomitant]
  22. CLOPIDOGREL [Concomitant]
  23. TELMISARTAN [Concomitant]
  24. RISEDRONIC ACID [Concomitant]
  25. IRON GLUCONATE [Concomitant]
  26. ACETAMINOPHEN [Concomitant]
  27. SEVELAMER CARBONATE [Concomitant]
  28. PRAVASTATIN [Concomitant]
  29. SIMVASTATIN [Concomitant]
     Dosage: 10/20 MG
     Dates: start: 20111116
  30. MIRCERA [Suspect]
     Route: 042
  31. DARBEPOETIN ALFA [Suspect]
     Indication: NEPHROGENIC ANAEMIA
     Dosage: NURSE MISTAKE ON 15 DEC 2010, DARBEPOTIN ALFA (BATCH 1016812) WAS ADMINISTERED.
     Route: 065
     Dates: start: 20101215, end: 20101215
  32. VERAPAMIL [Concomitant]
  33. METOPROLOL SUCCINATE [Concomitant]
  34. SEVELAMER CARBONATE [Concomitant]
  35. MIRCERA [Suspect]
     Dosage: LAST DOSE PRIOR TO SAE:15 NOVEMBER 2010, DOSAGE FORM: PFS
     Route: 042
  36. ATORVASTATIN CALCIUM [Concomitant]
  37. DIGOXIN [Concomitant]
     Dosage: TDD: 625 GU
     Dates: start: 20100702, end: 20101124
  38. PARICALCITOL [Concomitant]
     Dosage: REPORTED AS PARACALCITOL
  39. AMLODIPINE [Concomitant]
  40. TICLOPIDINE HCL [Concomitant]
     Dates: start: 20111031
  41. VYTORIN [Concomitant]
     Dosage: 10/20 MG DAILY
     Dates: start: 20111116

REACTIONS (8)
  - MYOCARDIAL ISCHAEMIA [None]
  - LETHARGY [None]
  - PERIPHERAL ISCHAEMIA [None]
  - ANGINA PECTORIS [None]
  - CEREBRAL ISCHAEMIA [None]
  - CHRONIC MYELOID LEUKAEMIA [None]
  - MYOCARDIAL INFARCTION [None]
  - SPINAL COMPRESSION FRACTURE [None]
